FAERS Safety Report 6554103-6 (Version None)
Quarter: 2010Q1

REPORT INFORMATION
  Report Type: 
  Country: None (occurrence: None)
  Receive Date: 20100125
  Receipt Date: 20100125
  Transmission Date: 20100710
  Serious: No
  Sender: FDA-Public Use
  Company Number: None

PATIENT
  Age: 38 Year
  Sex: Female
  Weight: 61.2356 kg

DRUGS (1)
  1. XANAX [Suspect]
     Indication: INSOMNIA
     Dosage: 0.5MG EVERY NIGHT PO
     Route: 048
     Dates: start: 20080111, end: 20080904

REACTIONS (8)
  - ANXIETY [None]
  - DEREALISATION [None]
  - DIZZINESS [None]
  - DRUG WITHDRAWAL SYNDROME [None]
  - FATIGUE [None]
  - INSOMNIA [None]
  - SLEEP TERROR [None]
  - THINKING ABNORMAL [None]
